FAERS Safety Report 11287993 (Version 2)
Quarter: 2015Q3

REPORT INFORMATION
  Report Type: Spontaneous
  Country: CN (occurrence: CN)
  Receive Date: 20150721
  Receipt Date: 20150902
  Transmission Date: 20151125
  Serious: Yes (Hospitalization)
  Sender: FDA-Public Use
  Company Number: CN-ASTELLAS-2015US025860

PATIENT
  Age: 38 Year
  Sex: Male

DRUGS (3)
  1. PROGRAF [Suspect]
     Active Substance: TACROLIMUS\TACROLIMUS ANHYDROUS
     Dosage: 10 MG, UNKNOWN FREQ/D
     Route: 048
     Dates: start: 201507, end: 201507
  2. PROGRAF [Suspect]
     Active Substance: TACROLIMUS\TACROLIMUS ANHYDROUS
     Indication: RENAL TRANSPLANT
     Dosage: 8 MG, UNKNOWN FREQ/D
     Route: 048
     Dates: end: 201507
  3. PROGRAF [Suspect]
     Active Substance: TACROLIMUS\TACROLIMUS ANHYDROUS
     Dosage: 6 MG, UNKNOWN FREQ/D
     Route: 048
     Dates: start: 201507

REACTIONS (2)
  - Impaired healing [Recovered/Resolved]
  - Drug level changed [Recovered/Resolved]

NARRATIVE: CASE EVENT DATE: 20150701
